APPROVED DRUG PRODUCT: CHIRHOSTIM
Active Ingredient: SECRETIN SYNTHETIC HUMAN
Strength: 16MCG/VIAL
Dosage Form/Route: FOR SOLUTION;INTRAVENOUS
Application: N021256 | Product #001
Applicant: CHIRHOCLIN INC
Approved: Apr 9, 2004 | RLD: Yes | RS: Yes | Type: RX